FAERS Safety Report 4508585-1 (Version None)
Quarter: 2004Q4

REPORT INFORMATION
  Report Type: 
  Country: None (occurrence: None)
  Receive Date: 20041123
  Receipt Date: 20040413
  Transmission Date: 20050328
  Serious: Yes (Other)
  Sender: FDA-Public Use
  Company Number: US-GLAXOSMITHKLINE-A0506949A

PATIENT
  Age: 47 Year
  Sex: Male

DRUGS (2)
  1. WELLBUTRIN [Suspect]
     Indication: DEPRESSION
     Dosage: 300MG PER DAY
     Route: 048
     Dates: start: 20030301, end: 20040413
  2. ZYRTEC [Concomitant]

REACTIONS (2)
  - CONVULSION [None]
  - RECTAL HAEMORRHAGE [None]
